FAERS Safety Report 7691325-5 (Version None)
Quarter: 2011Q3

REPORT INFORMATION
  Report Type: 
  Country: None (occurrence: None)
  Receive Date: 20110818
  Receipt Date: 20110811
  Transmission Date: 20111222
  Serious: Yes (Death, Hospitalization, Other)
  Sender: FDA-Public Use
  Company Number: US-CELGENEUS-163-21880-10110952

PATIENT
  Sex: Female

DRUGS (28)
  1. DILAUDID [Concomitant]
     Route: 065
  2. REGLAN [Concomitant]
     Route: 065
  3. OXALIPLATIN [Concomitant]
     Route: 065
  4. FLUOROURACIL [Concomitant]
     Route: 065
  5. FISH OIL [Concomitant]
     Route: 065
  6. MAGNESIUM [Concomitant]
     Route: 065
  7. LEUCOVORIN CALCIUM [Concomitant]
     Route: 065
  8. DEXAMETHASONE [Concomitant]
     Route: 065
  9. BACTRIM [Concomitant]
     Route: 065
  10. VITAMIN D [Concomitant]
     Route: 065
  11. NEULASTA [Concomitant]
     Route: 065
  12. PROCRIT [Concomitant]
     Route: 065
  13. VELCADE [Concomitant]
     Dosage: 1.3 MILLIGRAM/SQ. METER
     Route: 041
     Dates: start: 20101011, end: 20110310
  14. FOLFOX 6 [Concomitant]
     Route: 041
     Dates: start: 20110501, end: 20110621
  15. AVELOX [Concomitant]
     Route: 065
  16. ASPIRIN [Concomitant]
     Route: 065
  17. CALCIUM CARBONATE [Concomitant]
     Route: 065
  18. SANCUSO [Concomitant]
     Route: 065
  19. LIALDO [Concomitant]
     Route: 065
  20. REVLIMID [Suspect]
     Indication: MULTIPLE MYELOMA
     Dosage: 25 MILLIGRAM
     Route: 048
     Dates: start: 20101001
  21. FENTANYL [Concomitant]
     Route: 065
  22. ACYCLOVIR [Concomitant]
     Route: 065
  23. M.V.I. [Concomitant]
     Route: 065
  24. REVLIMID [Suspect]
     Dosage: 15 MILLIGRAM
     Route: 048
     Dates: start: 20110601
  25. ATIVAN [Concomitant]
     Route: 065
  26. ZOMETA [Concomitant]
     Dosage: 4 MILLIGRAM
     Route: 041
     Dates: start: 20101001, end: 20110621
  27. REVLIMID [Suspect]
     Dosage: 10-15MG
     Route: 048
     Dates: start: 20110301
  28. MARINOL [Concomitant]
     Route: 065

REACTIONS (4)
  - PANCREATIC CARCINOMA [None]
  - PANCREATITIS [None]
  - RED BLOOD CELL COUNT DECREASED [None]
  - WHITE BLOOD CELL COUNT DECREASED [None]
